FAERS Safety Report 15742310 (Version 1)
Quarter: 2018Q4

REPORT INFORMATION
  Report Type: Spontaneous
  Country: US (occurrence: US)
  Receive Date: 20181219
  Receipt Date: 20181219
  Transmission Date: 20190205
  Serious: Yes (Hospitalization)
  Sender: FDA-Public Use
  Company Number: None

PATIENT
  Sex: Male

DRUGS (8)
  1. FLOVENT [Concomitant]
     Active Substance: FLUTICASONE PROPIONATE
  2. REVATIO [Suspect]
     Active Substance: SILDENAFIL CITRATE
     Indication: HYPOPLASTIC LEFT HEART SYNDROME
     Route: 048
     Dates: start: 20181004
  3. EPANED [Concomitant]
     Active Substance: ENALAPRIL MALEATE
  4. SALINE NASAL SPR [Concomitant]
  5. ASPIRIN. [Concomitant]
     Active Substance: ASPIRIN
  6. SYNAGIS [Concomitant]
     Active Substance: PALIVIZUMAB
  7. DIGOXIN. [Concomitant]
     Active Substance: DIGOXIN
  8. RANITDINE [Concomitant]

REACTIONS (3)
  - Erythema [None]
  - Oxygen saturation decreased [None]
  - Pyrexia [None]
